FAERS Safety Report 23349035 (Version 1)
Quarter: 2023Q4

REPORT INFORMATION
  Report Type: Spontaneous
  Country: US (occurrence: US)
  Receive Date: 20231229
  Receipt Date: 20231229
  Transmission Date: 20240109
  Serious: No
  Sender: FDA-Public Use
  Company Number: US-MLMSERVICE-20231214-4729642-1

PATIENT
  Age: 59 Year
  Sex: Female

DRUGS (10)
  1. VALPROATE [Suspect]
     Active Substance: VALPROIC ACID
     Indication: Myoclonus
  2. CLOZAPINE [Concomitant]
     Active Substance: CLOZAPINE
     Indication: Depression
     Dosage: 25 MG IN THE MORNING AND 50 MG IN THE EVENING
  3. CLOZAPINE [Concomitant]
     Active Substance: CLOZAPINE
     Indication: Bipolar disorder
     Dosage: DOSE GRADUALLY INCREASED TO 75 MG IN THE MORNING AND 125 MG IN THE EVENING
  4. CLOZAPINE [Concomitant]
     Active Substance: CLOZAPINE
     Dosage: DOSE GRADUALLY INCREASED TO 75 MG IN THE MORNING AND 125 MG IN THE EVENING
  5. CLOZAPINE [Concomitant]
     Active Substance: CLOZAPINE
     Dosage: DOSE GRADUALLY INCREASED TO 75 MG IN THE MORNING AND 125 MG IN THE EVENING
  6. CLOZAPINE [Concomitant]
     Active Substance: CLOZAPINE
     Dosage: DOSE GRADUALLY INCREASED TO 75 MG IN THE MORNING AND 125 MG IN THE EVENING
  7. CLOZAPINE [Concomitant]
     Active Substance: CLOZAPINE
     Dosage: 25 MG IN THE MORNING AND 50 MG IN THE EVENING
  8. CLOZAPINE [Concomitant]
     Active Substance: CLOZAPINE
     Dosage: DAY 14 OF HOSPITALIZATION
  9. LITHIUM [Concomitant]
     Active Substance: LITHIUM
     Indication: Bipolar disorder
     Dosage: DOSE WAS GRADUALLY INCREASED TO 450 MG IN THE EVENING BY DAY 50
  10. LITHIUM [Concomitant]
     Active Substance: LITHIUM
     Indication: Depression
     Dosage: DAY 45 OF HOSPITALIZATION

REACTIONS (1)
  - Sedation complication [Unknown]
